FAERS Safety Report 4466449-6 (Version None)
Quarter: 2004Q4

REPORT INFORMATION
  Report Type: 
  Country: None (occurrence: None)
  Receive Date: 20041005
  Receipt Date: 20040804
  Transmission Date: 20050328
  Serious: Yes (Hospitalization, Other)
  Sender: FDA-Public Use
  Company Number: GB-MERCK-0408GBR00054

PATIENT
  Age: 83 Year
  Sex: Male

DRUGS (2)
  1. PROSCAR [Suspect]
     Indication: BENIGN PROSTATIC HYPERPLASIA
     Route: 048
     Dates: start: 20040601, end: 20040717
  2. PROSCAR [Suspect]
     Route: 048
     Dates: start: 20040601, end: 20040717

REACTIONS (2)
  - BLADDER CANCER [None]
  - HEPATITIS [None]
